FAERS Safety Report 14327878 (Version 1)
Quarter: 2017Q4

REPORT INFORMATION
  Report Type: Spontaneous
  Country: CN (occurrence: CN)
  Receive Date: 20171227
  Receipt Date: 20171227
  Transmission Date: 20180321
  Serious: Yes (Other)
  Sender: FDA-Public Use
  Company Number: CN-ELI_LILLY_AND_COMPANY-CN201712010490

PATIENT
  Sex: Male

DRUGS (3)
  1. AMIODARONUM [Concomitant]
     Indication: PRODUCT USED FOR UNKNOWN INDICATION
  2. DABIGATRAN [Concomitant]
     Active Substance: DABIGATRAN
     Indication: PRODUCT USED FOR UNKNOWN INDICATION
  3. CIALIS [Suspect]
     Active Substance: TADALAFIL
     Indication: ERECTILE DYSFUNCTION
     Dosage: 20 MG, PRN
     Route: 048
     Dates: start: 20171220, end: 20171220

REACTIONS (5)
  - Hypotension [Unknown]
  - Flushing [Unknown]
  - Tachycardia [Unknown]
  - Poor quality sleep [Unknown]
  - Arrhythmia [Unknown]
